FAERS Safety Report 25140549 (Version 1)
Quarter: 2025Q1

REPORT INFORMATION
  Report Type: Spontaneous
  Country: JP (occurrence: JP)
  Receive Date: 20250331
  Receipt Date: 20250331
  Transmission Date: 20250409
  Serious: Yes (Other)
  Sender: GUERBET
  Company Number: JP-GUERBET-JP-20190233

PATIENT
  Age: 8 Decade
  Sex: Female

DRUGS (2)
  1. LIPIODOL [Suspect]
     Active Substance: ETHIODIZED OIL
     Indication: Therapeutic embolisation
     Dosage: 1 ML OF A 1:4 MIXTURE OF NBCA (N-BUTYL CYANOACRYLATE) AND LIPIODOL
     Route: 013
  2. ENBUCRILATE [Concomitant]
     Active Substance: ENBUCRILATE
     Indication: Therapeutic embolisation
     Route: 013

REACTIONS (4)
  - Hepatic infarction [Recovering/Resolving]
  - Liver abscess [Recovering/Resolving]
  - Biloma [Recovering/Resolving]
  - Infection [Recovering/Resolving]
